FAERS Safety Report 4630974-5 (Version None)
Quarter: 2005Q2

REPORT INFORMATION
  Report Type: 
  Country: None (occurrence: None)
  Receive Date: 20050406
  Receipt Date: 20050406
  Transmission Date: 20051028
  Serious: Yes (Hospitalization)
  Sender: FDA-Public Use
  Company Number: None

PATIENT
  Age: 69 Year
  Sex: Female

DRUGS (11)
  1. TEQUIN [Suspect]
     Indication: CHRONIC OBSTRUCTIVE AIRWAYS DISEASE EXACERBATED
     Dosage: 400 MG ONCE A DAY ORAL
     Route: 048
     Dates: start: 20050105, end: 20050107
  2. PREDNISONE [Concomitant]
  3. ZOLOFT [Concomitant]
  4. ATENOLOL [Concomitant]
  5. ZOCOR [Concomitant]
  6. SEROQUEL [Concomitant]
  7. ADVAIR DISKUS 100/50 [Concomitant]
  8. HYDROCHLOROTHIAZIDE [Concomitant]
  9. COMBIVENT [Concomitant]
  10. FLONASE [Concomitant]
  11. ALBUTEROL [Concomitant]

REACTIONS (5)
  - ANXIETY [None]
  - DIZZINESS [None]
  - NAUSEA [None]
  - TREMOR [None]
  - VERTIGO [None]
